FAERS Safety Report 9520183 (Version 1)
Quarter: 2013Q3

REPORT INFORMATION
  Report Type: Spontaneous
  Country: US (occurrence: US)
  Receive Date: 20130912
  Receipt Date: 20130912
  Transmission Date: 20140515
  Serious: No
  Sender: FDA-Public Use
  Company Number: US-MUTUAL PHARMACEUTICAL COMPANY, INC.-BCTM20120056

PATIENT
  Age: 62 Year
  Sex: Female

DRUGS (4)
  1. BACTRIM TABLETS [Suspect]
     Indication: RHINORRHOEA
     Route: 065
  2. BACTRIM TABLETS [Suspect]
     Indication: COUGH
  3. ZITHROMAX [Concomitant]
     Indication: RHINORRHOEA
     Route: 065
  4. ZITHROMAX [Concomitant]
     Indication: COUGH

REACTIONS (3)
  - Faecal incontinence [Recovered/Resolved]
  - Diarrhoea [Recovered/Resolved]
  - Abdominal pain [Recovered/Resolved]
